FAERS Safety Report 7880413-6 (Version None)
Quarter: 2011Q4

REPORT INFORMATION
  Report Type: 
  Country: None (occurrence: None)
  Receive Date: 20111101
  Receipt Date: 20111024
  Transmission Date: 20120403
  Serious: Yes (Death, Hospitalization, Other)
  Sender: FDA-Public Use
  Company Number: PHHY2008JP28292

PATIENT
  Sex: Female
  Weight: 45 kg

DRUGS (4)
  1. EXJADE [Suspect]
     Indication: MYELODYSPLASTIC SYNDROME
     Dosage: 1000 MG, QD
     Route: 048
     Dates: start: 20081030, end: 20081109
  2. RED BLOOD CELLS [Concomitant]
     Dosage: 2 U, UNK
     Dates: start: 20060901
  3. GLAKAY [Concomitant]
     Indication: MYELODYSPLASTIC SYNDROME
     Dosage: 45 MG, UNK
     Route: 048
     Dates: start: 20081030
  4. PRIMOBOLAN-DEPOT INJ [Concomitant]
     Indication: MYELODYSPLASTIC SYNDROME
     Dosage: UNK UKN, UNK
     Dates: start: 20081030

REACTIONS (22)
  - TOXIC EPIDERMAL NECROLYSIS [None]
  - NEOPLASM MALIGNANT [None]
  - C-REACTIVE PROTEIN INCREASED [None]
  - GAMMA-GLUTAMYLTRANSFERASE INCREASED [None]
  - HAEMOGLOBIN DECREASED [None]
  - ERYTHEMA MULTIFORME [None]
  - OCULAR HYPERAEMIA [None]
  - PRURITUS [None]
  - HAEMORRHAGE SUBCUTANEOUS [None]
  - ERYTHEMA [None]
  - PYREXIA [None]
  - CONJUNCTIVAL HYPERAEMIA [None]
  - PANCYTOPENIA [None]
  - PLATELET COUNT DECREASED [None]
  - GENERALISED ERYTHEMA [None]
  - ORAL PAIN [None]
  - SERUM FERRITIN INCREASED [None]
  - PNEUMONIA [None]
  - RED BLOOD CELL COUNT DECREASED [None]
  - NEOPLASM PROGRESSION [None]
  - RASH [None]
  - FUNGAL INFECTION [None]
